FAERS Safety Report 10370545 (Version 2)
Quarter: 2014Q3

REPORT INFORMATION
  Report Type: Spontaneous
  Country: US (occurrence: US)
  Receive Date: 20140808
  Receipt Date: 20140820
  Transmission Date: 20150326
  Serious: Yes (Hospitalization)
  Sender: FDA-Public Use
  Company Number: US-JNJFOC-20140801310

PATIENT
  Sex: Female

DRUGS (2)
  1. NORCO [Interacting]
     Active Substance: ACETAMINOPHEN\HYDROCODONE BITARTRATE
     Indication: PAIN
     Route: 065
  2. ULTRAM [Suspect]
     Active Substance: TRAMADOL HYDROCHLORIDE
     Indication: PAIN
     Route: 065

REACTIONS (6)
  - Convulsion [Unknown]
  - Drug interaction [Unknown]
  - Erythema [Unknown]
  - Dizziness [Unknown]
  - Pyrexia [Unknown]
  - Swelling [Unknown]
